FAERS Safety Report 23647739 (Version 2)
Quarter: 2025Q2

REPORT INFORMATION
  Report Type: Spontaneous
  Country: US (occurrence: US)
  Receive Date: 20240319
  Receipt Date: 20250616
  Transmission Date: 20250717
  Serious: Yes (Other)
  Sender: SANOFI AVENTIS
  Company Number: US-SA-SAC20240314000977

PATIENT
  Age: 59 Year
  Sex: Female

DRUGS (34)
  1. DUPIXENT [Suspect]
     Active Substance: DUPILUMAB
     Indication: Dermatitis
     Dosage: 300 MG, QOW
     Route: 058
     Dates: start: 202402
  2. DUPIXENT [Suspect]
     Active Substance: DUPILUMAB
     Indication: Pemphigoid
  3. BETAMETHASONE [Concomitant]
     Active Substance: BETAMETHASONE
  4. CLONAZEPAM [Concomitant]
     Active Substance: CLONAZEPAM
  5. COSENTYX [Concomitant]
     Active Substance: SECUKINUMAB
  6. DESONIDE [Concomitant]
     Active Substance: DESONIDE
  7. DICLOFENAC SODIUM [Concomitant]
     Active Substance: DICLOFENAC SODIUM
  8. HALOPERIDOL [Concomitant]
     Active Substance: HALOPERIDOL
  9. HYDROXYZINE [Concomitant]
     Active Substance: HYDROXYZINE HYDROCHLORIDE
  10. IVERMECTIN [Concomitant]
     Active Substance: IVERMECTIN
  11. KETOCONAZOLE [Concomitant]
     Active Substance: KETOCONAZOLE
  12. LACTULOSE [Concomitant]
     Active Substance: LACTULOSE
  13. LINZESS [Concomitant]
     Active Substance: LINACLOTIDE
  14. LUBIPROSTONE [Concomitant]
     Active Substance: LUBIPROSTONE
  15. MECLIZINE HYDROCHLORIDE [Concomitant]
     Active Substance: MECLIZINE HYDROCHLORIDE
  16. OMEPRAZOLE [Concomitant]
     Active Substance: OMEPRAZOLE
  17. ONDANSETRON [Concomitant]
     Active Substance: ONDANSETRON
  18. OXYBUTYNIN [Concomitant]
     Active Substance: OXYBUTYNIN
  19. PANTOPRAZOLE [Concomitant]
     Active Substance: PANTOPRAZOLE
  20. POTASSIUM CHLORATE [Concomitant]
     Active Substance: POTASSIUM CHLORATE
  21. QUETIAPINE [Concomitant]
     Active Substance: QUETIAPINE
  22. TOBRAMYCIN AND DEXAMETHASONE [Concomitant]
     Active Substance: DEXAMETHASONE\TOBRAMYCIN
  23. TRAMADOL HCL [Concomitant]
     Active Substance: TRAMADOL HYDROCHLORIDE
  24. TRAZODONE [Concomitant]
     Active Substance: TRAZODONE HYDROCHLORIDE
  25. VITAMIN D3 [Concomitant]
     Active Substance: CHOLECALCIFEROL
  26. DICLOFENAC [Concomitant]
     Active Substance: DICLOFENAC
  27. ZOLPIDEM TARTRATE [Concomitant]
     Active Substance: ZOLPIDEM TARTRATE
  28. CICLOPIROX [Concomitant]
     Active Substance: CICLOPIROX
  29. HYDROCORTISONE [Concomitant]
     Active Substance: HYDROCORTISONE
  30. METHYLPREDNISOLONE [Concomitant]
     Active Substance: METHYLPREDNISOLONE
  31. METRONIDAZOLE [Concomitant]
     Active Substance: METRONIDAZOLE
  32. TRIAMCINOLONE [Concomitant]
     Active Substance: TRIAMCINOLONE
  33. METHOCARBAMOL [Concomitant]
     Active Substance: METHOCARBAMOL
  34. METRONIDAZOLE [Concomitant]
     Active Substance: METRONIDAZOLE

REACTIONS (6)
  - Cholecystectomy [Unknown]
  - Weight decreased [Not Recovered/Not Resolved]
  - Eye inflammation [Not Recovered/Not Resolved]
  - Oedema peripheral [Not Recovered/Not Resolved]
  - Stress [Not Recovered/Not Resolved]
  - Product use in unapproved indication [Unknown]

NARRATIVE: CASE EVENT DATE: 20240101
